FAERS Safety Report 4907395-0 (Version None)
Quarter: 2006Q1

REPORT INFORMATION
  Report Type: 
  Country: None (occurrence: None)
  Receive Date: 20060208
  Receipt Date: 20060208
  Transmission Date: 20060701
  Serious: No
  Sender: FDA-Public Use
  Company Number: None

PATIENT
  Age: 27 Year
  Sex: Male
  Weight: 90.7194 kg

DRUGS (1)
  1. PAXIL [Suspect]
     Indication: GENERALISED ANXIETY DISORDER
     Dosage: 20 MG DAILY PO
     Route: 048
     Dates: start: 20050401, end: 20060124

REACTIONS (5)
  - ANXIETY [None]
  - ERECTILE DYSFUNCTION [None]
  - LIBIDO DECREASED [None]
  - NERVOUSNESS [None]
  - WEIGHT INCREASED [None]
